FAERS Safety Report 5618840-X (Version None)
Quarter: 2008Q1

REPORT INFORMATION
  Report Type: 
  Country: None (occurrence: None)
  Receive Date: 20080204
  Receipt Date: 20080128
  Transmission Date: 20080703
  Serious: Yes (Death)
  Sender: FDA-Public Use
  Company Number: 163-21880-08010114

PATIENT
  Age: 49 Year
  Sex: Male

DRUGS (1)
  1. REVLIMID [Suspect]
     Indication: MULTIPLE MYELOMA
     Dosage: 25 MG, 1 IN 1 D, ORAL
     Route: 048
     Dates: start: 20071219, end: 20071201

REACTIONS (3)
  - MULTIPLE MYELOMA [None]
  - NEOPLASM PROGRESSION [None]
  - RENAL FAILURE ACUTE [None]
